FAERS Safety Report 8044411-4 (Version None)
Quarter: 2012Q1

REPORT INFORMATION
  Report Type: 
  Country: None (occurrence: None)
  Receive Date: 20120113
  Receipt Date: 20120103
  Transmission Date: 20120608
  Serious: Yes (Death)
  Sender: FDA-Public Use
  Company Number: US-SHIONOGI, INC-2012000050

PATIENT
  Age: 48 Year
  Sex: Female

DRUGS (4)
  1. MECLIZINE HCL [Suspect]
     Dosage: UNK
  2. NAPROXEN [Suspect]
     Dosage: UNK
  3. BUPROPION HYDROCHLORIDE [Suspect]
     Dosage: UNK
  4. DILTIAZEM [Suspect]
     Dosage: UNK

REACTIONS (2)
  - COMPLETED SUICIDE [None]
  - CARDIO-RESPIRATORY ARREST [None]
